FAERS Safety Report 9852520 (Version 1)
Quarter: 2014Q1

REPORT INFORMATION
  Report Type: Spontaneous
  Country: US (occurrence: US)
  Receive Date: 20140129
  Receipt Date: 20140129
  Transmission Date: 20141002
  Serious: No
  Sender: FDA-Public Use
  Company Number: US-PFIZER INC-2014024537

PATIENT
  Age: 78 Year
  Sex: Male
  Weight: 115.65 kg

DRUGS (5)
  1. CELEBREX [Suspect]
     Indication: SPINAL PAIN
     Dosage: 200 MG, 1X/DAY
     Route: 048
     Dates: start: 20130209, end: 20130216
  2. CELEBREX [Suspect]
     Indication: MUSCULOSKELETAL PAIN
  3. LOVASTATIN [Concomitant]
     Indication: BLOOD CHOLESTEROL INCREASED
     Dosage: UNK
  4. LOSARTAN [Concomitant]
     Indication: HYPERTENSION
     Dosage: UNK
  5. ASPIRIN [Concomitant]
     Dosage: UNK

REACTIONS (1)
  - Drug ineffective [Unknown]
